FAERS Safety Report 6884808-9 (Version None)
Quarter: 2010Q3

REPORT INFORMATION
  Report Type: 
  Country: None (occurrence: None)
  Receive Date: 20100729
  Receipt Date: 20070912
  Transmission Date: 20110219
  Serious: No
  Sender: FDA-Public Use
  Company Number: US-PFIZER INC-2007071794

PATIENT
  Sex: Female
  Weight: 79.1 kg

DRUGS (7)
  1. CELEBREX [Suspect]
     Indication: ARTHRITIS
  2. PREDNISONE [Suspect]
     Indication: ARTHRITIS
  3. HYZAAR [Concomitant]
     Indication: CARDIAC FAILURE CONGESTIVE
  4. COREG [Concomitant]
     Indication: CARDIAC FAILURE CONGESTIVE
  5. LIPITOR [Concomitant]
  6. SYNTHROID [Concomitant]
     Indication: HYPOTHYROIDISM
  7. PROCRIT [Concomitant]
     Indication: ANAEMIA

REACTIONS (1)
  - ARTHRITIS [None]
